FAERS Safety Report 5977549-3 (Version None)
Quarter: 2008Q4

REPORT INFORMATION
  Report Type: 
  Country: None (occurrence: None)
  Receive Date: 20081201
  Receipt Date: 20081201
  Transmission Date: 20090506
  Serious: Yes (Hospitalization)
  Sender: FDA-Public Use
  Company Number: None

PATIENT
  Age: 61 Year
  Sex: Male
  Weight: 105.6881 kg

DRUGS (1)
  1. ADVAIR DISKUS 250/50 [Suspect]
     Indication: CHRONIC OBSTRUCTIVE PULMONARY DISEASE
     Dosage: 1 PUFF TWICE A DAY
     Dates: start: 20080607, end: 20080630

REACTIONS (22)
  - ACTIVITIES OF DAILY LIVING IMPAIRED [None]
  - BLADDER DISORDER [None]
  - BURNING SENSATION [None]
  - DRUG HYPERSENSITIVITY [None]
  - DYSPNOEA [None]
  - DYSURIA [None]
  - FEELING ABNORMAL [None]
  - HAEMOPTYSIS [None]
  - HEADACHE [None]
  - HEART RATE IRREGULAR [None]
  - HYPOAESTHESIA ORAL [None]
  - ILL-DEFINED DISORDER [None]
  - LUNG DISORDER [None]
  - LUNG INFECTION [None]
  - MUSCLE SPASMS [None]
  - OXYGEN SATURATION DECREASED [None]
  - PAIN [None]
  - PARAESTHESIA [None]
  - PRODUCT QUALITY ISSUE [None]
  - PRODUCTIVE COUGH [None]
  - RASH MACULAR [None]
  - THROAT TIGHTNESS [None]
